FAERS Safety Report 15241780 (Version 3)
Quarter: 2019Q1

REPORT INFORMATION
  Report Type: Report from Study
  Country: JP (occurrence: JP)
  Receive Date: 20180805
  Receipt Date: 20190104
  Transmission Date: 20190417
  Serious: Yes (Hospitalization, Other)
  Sender: FDA-Public Use
  Company Number: JP-BEH-2018093388

PATIENT
  Age: 67 Year
  Sex: Female
  Weight: 52.2 kg

DRUGS (18)
  1. BERIPLEX P/N [Suspect]
     Active Substance: COAGULATION FACTOR IX HUMAN\COAGULATION FACTOR VII HUMAN\COAGULATION FACTOR X HUMAN\PROTEIN C\PROTEIN S HUMAN\PROTHROMBIN
     Dosage: UNK
     Route: 042
  2. WARFARIN [Suspect]
     Active Substance: WARFARIN
     Indication: SUBDURAL HAEMATOMA
     Dosage: 3.5 UNK, UNK
     Route: 048
     Dates: start: 20180215, end: 20180218
  3. OLMETEC [Concomitant]
     Active Substance: OLMESARTAN MEDOXOMIL
     Indication: HYPERTENSION
     Dosage: UNK
     Route: 048
     Dates: start: 20180210
  4. KAYTWO N [Concomitant]
     Active Substance: MENATETRENONE
     Dosage: 20 MG, QD
     Route: 065
     Dates: start: 20180218, end: 20180218
  5. FAMOTIDINE ACID REDUCER [Concomitant]
     Indication: PROPHYLAXIS AGAINST GASTROINTESTINAL ULCER
     Dosage: UNK
     Route: 048
     Dates: start: 20180209, end: 20180312
  6. BERIPLEX P/N [Suspect]
     Active Substance: COAGULATION FACTOR IX HUMAN\COAGULATION FACTOR VII HUMAN\COAGULATION FACTOR X HUMAN\PROTEIN C\PROTEIN S HUMAN\PROTHROMBIN
     Indication: HAEMORRHAGE
     Dosage: 1500 IU, UNK
     Route: 042
     Dates: start: 20180206
  7. WARFARIN [Suspect]
     Active Substance: WARFARIN
     Indication: THROMBOSIS PROPHYLAXIS
     Dosage: 1.5 MG, UNK
     Route: 048
     Dates: start: 20180215, end: 20180218
  8. HEPARIN SODIUM. [Suspect]
     Active Substance: HEPARIN SODIUM
     Indication: THROMBOSIS PROPHYLAXIS
     Dosage: UNK
     Route: 065
     Dates: start: 20180214, end: 20180218
  9. WARFARIN [Suspect]
     Active Substance: WARFARIN
     Indication: SKULL FRACTURED BASE
  10. CEFAZOLIN [Concomitant]
     Active Substance: CEFAZOLIN
     Indication: INFECTION PROPHYLAXIS
     Dosage: UNK
     Route: 065
     Dates: start: 20180206, end: 20180208
  11. BERIPLEX P/N [Suspect]
     Active Substance: COAGULATION FACTOR IX HUMAN\COAGULATION FACTOR VII HUMAN\COAGULATION FACTOR X HUMAN\PROTEIN C\PROTEIN S HUMAN\PROTHROMBIN
     Indication: SURGERY
     Dosage: 1000 IU, UNK
     Route: 042
     Dates: start: 20180218
  12. BERIPLEX P/N [Suspect]
     Active Substance: COAGULATION FACTOR IX HUMAN\COAGULATION FACTOR VII HUMAN\COAGULATION FACTOR X HUMAN\PROTEIN C\PROTEIN S HUMAN\PROTHROMBIN
     Dosage: UNK
     Route: 042
  13. WARFARIN [Suspect]
     Active Substance: WARFARIN
     Indication: SKULL FRACTURE
  14. GASTER [Concomitant]
     Active Substance: FAMOTIDINE
     Indication: PROPHYLAXIS AGAINST GASTROINTESTINAL ULCER
     Dosage: UNK
     Route: 065
     Dates: start: 20180206, end: 20180208
  15. AMLODIPINE [Concomitant]
     Active Substance: AMLODIPINE BESYLATE
     Indication: HYPERTENSION
     Dosage: UNK
     Route: 048
     Dates: start: 20180209
  16. TRANSAMIN [Concomitant]
     Active Substance: TRANEXAMIC ACID
     Dosage: UNK
     Route: 065
     Dates: start: 20180206, end: 20180206
  17. CARDENALIN [Concomitant]
     Active Substance: DOXAZOSIN MESYLATE
     Indication: HYPERTENSION
     Dosage: UNK
     Route: 048
     Dates: start: 20180211, end: 20180313
  18. KAYTWO N [Concomitant]
     Active Substance: MENATETRENONE
     Indication: PROCOAGULANT THERAPY
     Dosage: 20 MG, QD
     Route: 065
     Dates: start: 20180206, end: 20180206

REACTIONS (9)
  - Pupils unequal [Recovering/Resolving]
  - Epilepsy [Recovering/Resolving]
  - Depressed level of consciousness [Unknown]
  - Urinary tract infection [Recovering/Resolving]
  - Altered state of consciousness [Recovering/Resolving]
  - Urinary tract infection [Recovering/Resolving]
  - Hypertension [Recovering/Resolving]
  - Subdural haematoma [Recovering/Resolving]
  - Pyrexia [Recovering/Resolving]

NARRATIVE: CASE EVENT DATE: 20180206
